FAERS Safety Report 18261563 (Version 1)
Quarter: 2020Q3

REPORT INFORMATION
  Report Type: Spontaneous
  Country: US (occurrence: US)
  Receive Date: 20200911
  Receipt Date: 20200911
  Transmission Date: 20201103
  Serious: No
  Sender: FDA-Public Use
  Company Number: None

PATIENT
  Age: 83 Year
  Sex: Female
  Weight: 82.1 kg

DRUGS (16)
  1. LEVETIRACETAM ER [Concomitant]
     Active Substance: LEVETIRACETAM
  2. LOSARTAN POTASSIUM. [Concomitant]
     Active Substance: LOSARTAN POTASSIUM
  3. NORCO [Concomitant]
     Active Substance: ACETAMINOPHEN\HYDROCODONE BITARTRATE
  4. RETACRIT 40,000 UNITS/ML VIAL [Concomitant]
  5. ASPIRIN 81 [Concomitant]
     Active Substance: ASPIRIN
  6. METFORMIN HCL [Concomitant]
     Active Substance: METFORMIN HYDROCHLORIDE
  7. GABAPENTIN. [Concomitant]
     Active Substance: GABAPENTIN
  8. SPIRIVA RESPIMAT [Concomitant]
     Active Substance: TIOTROPIUM BROMIDE
  9. ZARXIO [Suspect]
     Active Substance: FILGRASTIM-SNDZ
     Indication: MYELODYSPLASTIC SYNDROME
     Dosage: ?          OTHER FREQUENCY:TWICE A WEEK;?
     Route: 058
     Dates: start: 20200630
  10. CARVEDILOL. [Concomitant]
     Active Substance: CARVEDILOL
  11. FLUTICASONE PROPIONATE NASAL [Concomitant]
     Active Substance: FLUTICASONE PROPIONATE
  12. LEVOTHYROXINE. [Concomitant]
     Active Substance: LEVOTHYROXINE
  13. ROWEEPRA [Concomitant]
     Active Substance: LEVETIRACETAM
  14. AZELASTINE HCL [Concomitant]
     Active Substance: AZELASTINE HYDROCHLORIDE
  15. HYDRALAZINE HCL [Concomitant]
     Active Substance: HYDRALAZINE HYDROCHLORIDE
  16. SIMVASTATIN. [Concomitant]
     Active Substance: SIMVASTATIN

REACTIONS (4)
  - Drooling [None]
  - Insomnia [None]
  - Upper-airway cough syndrome [None]
  - Fatigue [None]

NARRATIVE: CASE EVENT DATE: 20200911
